FAERS Safety Report 10801305 (Version 1)
Quarter: 2015Q1

REPORT INFORMATION
  Report Type: Spontaneous
  Country: DE (occurrence: DE)
  Receive Date: 20150217
  Receipt Date: 20150217
  Transmission Date: 20150721
  Serious: Yes (Other)
  Sender: FDA-Public Use
  Company Number: PHHY2015DE015000

PATIENT
  Sex: Male

DRUGS (1)
  1. LEPONEX [Suspect]
     Active Substance: CLOZAPINE
     Indication: PRODUCT USED FOR UNKNOWN INDICATION
     Dosage: 150 MG, QD
     Route: 065

REACTIONS (10)
  - Pericarditis [Unknown]
  - Pyrexia [Unknown]
  - Electrocardiogram T wave inversion [Unknown]
  - Lymphopenia [Unknown]
  - Diarrhoea [Unknown]
  - Tachycardia [Unknown]
  - Lipase increased [Unknown]
  - Neutropenia [Unknown]
  - Eosinophilia [Unknown]
  - Pericardial effusion [Unknown]
